FAERS Safety Report 19872943 (Version 1)
Quarter: 2021Q3

REPORT INFORMATION
  Report Type: Spontaneous
  Country: US (occurrence: US)
  Receive Date: 20210923
  Receipt Date: 20210923
  Transmission Date: 20211014
  Serious: Yes (Other)
  Sender: FDA-Public Use
  Company Number: None

PATIENT
  Sex: Female
  Weight: 72 kg

DRUGS (4)
  1. MULTIVITAMINS [Concomitant]
     Active Substance: VITAMINS
  2. BIOTIN [Concomitant]
     Active Substance: BIOTIN
  3. TEA [Concomitant]
     Active Substance: TEA LEAF
  4. KERANIQUE FOR WOMEN HAIR REGROWTH TREATMENT [Suspect]
     Active Substance: MINOXIDIL
     Indication: ALOPECIA
     Dosage: ?          OTHER STRENGTH:W/V;QUANTITY:5 SPRAY(S);?
     Route: 061
     Dates: start: 20190831, end: 20190930

REACTIONS (3)
  - Alopecia [None]
  - Depression [None]
  - Crying [None]
